FAERS Safety Report 8112993-X (Version None)
Quarter: 2012Q1

REPORT INFORMATION
  Report Type: 
  Country: None (occurrence: None)
  Receive Date: 20120203
  Receipt Date: 20120123
  Transmission Date: 20120608
  Serious: Yes (Hospitalization)
  Sender: FDA-Public Use
  Company Number: US-ELI_LILLY_AND_COMPANY-US201010005912

PATIENT
  Sex: Male
  Weight: 61.23 kg

DRUGS (12)
  1. FORTEO [Suspect]
     Dosage: 20 UG, QD
     Route: 065
     Dates: end: 20110702
  2. VITAMIN TAB [Concomitant]
  3. VITAMIN TAB [Concomitant]
  4. SENOKOT [Concomitant]
     Dosage: 2 DF, QD
  5. FORTEO [Suspect]
     Dosage: 20 UG, DAILY (1/D)
     Route: 065
  6. FORTEO [Suspect]
     Dosage: 20 UG, QD
     Route: 065
  7. VITAMIN D [Concomitant]
     Dosage: 50000 IU, WEEKLY (1/W)
  8. MULTI-VITAMINS [Concomitant]
     Dosage: UNK, QD
  9. FORTEO [Suspect]
     Indication: OSTEOPOROSIS
     Dosage: 20 UG, DAILY (1/D)
     Route: 065
     Dates: start: 20100518
  10. FORTEO [Suspect]
     Dosage: 20 UG, QD
     Dates: start: 20111001
  11. MIRALAX [Concomitant]
     Dosage: UNK, PRN
  12. CALCIUM WITH VITAMIN D             /00944201/ [Concomitant]
     Dosage: UNK, QD

REACTIONS (16)
  - HIP FRACTURE [None]
  - MUSCLE ATROPHY [None]
  - AGITATION [None]
  - PERSONALITY CHANGE [None]
  - FALL [None]
  - DECREASED APPETITE [None]
  - MOBILITY DECREASED [None]
  - CONSTIPATION [None]
  - DRUG INEFFECTIVE [None]
  - APPETITE DISORDER [None]
  - FATIGUE [None]
  - DEPRESSED MOOD [None]
  - WEIGHT DECREASED [None]
  - ASTHENIA [None]
  - DECREASED ACTIVITY [None]
  - DECREASED INTEREST [None]
